FAERS Safety Report 12314918 (Version 1)
Quarter: 2016Q2

REPORT INFORMATION
  Report Type: Spontaneous
  Country: US (occurrence: US)
  Receive Date: 20160428
  Receipt Date: 20160428
  Transmission Date: 20160815
  Serious: No
  Sender: FDA-Public Use
  Company Number: US-ENDO PHARMACEUTICALS INC.-2016-001369

PATIENT
  Sex: Male

DRUGS (1)
  1. PROPRANOLOL HCL TABLETS 10MG [Suspect]
     Active Substance: PROPRANOLOL HYDROCHLORIDE
     Indication: ESSENTIAL TREMOR
     Route: 065

REACTIONS (1)
  - Drug ineffective [Unknown]
